FAERS Safety Report 7076846-0 (Version None)
Quarter: 2010Q4

REPORT INFORMATION
  Report Type: 
  Country: None (occurrence: None)
  Receive Date: 20101101
  Receipt Date: 20101022
  Transmission Date: 20110411
  Serious: Yes (Other)
  Sender: FDA-Public Use
  Company Number: US-BAYER-201038734NA

PATIENT
  Age: 20 Year
  Sex: Female

DRUGS (2)
  1. YASMIN [Suspect]
     Route: 048
     Dates: start: 20041201, end: 20061201
  2. YASMIN [Suspect]
     Route: 048
     Dates: start: 20080201, end: 20080501

REACTIONS (1)
  - CHOLECYSTECTOMY [None]
